FAERS Safety Report 20651803 (Version 2)
Quarter: 2022Q2

REPORT INFORMATION
  Report Type: Spontaneous
  Country: US (occurrence: US)
  Receive Date: 20220330
  Receipt Date: 20220413
  Transmission Date: 20220721
  Serious: Yes (Hospitalization, Other)
  Sender: FDA-Public Use
  Company Number: US-CADILA HEALTHCARE LIMITED-US-ZYDUS-076091

PATIENT

DRUGS (3)
  1. BOSENTAN [Suspect]
     Active Substance: BOSENTAN
     Indication: Pulmonary arterial hypertension
     Dosage: 31.25 MILLIGRAM, BID
     Route: 048
     Dates: start: 20210610
  2. BOSENTAN [Suspect]
     Active Substance: BOSENTAN
     Dosage: 31.25 MILLIGRAM, BID
     Route: 048
  3. SILDENAFIL CITRATE [Concomitant]
     Active Substance: SILDENAFIL CITRATE
     Indication: Product used for unknown indication
     Route: 065

REACTIONS (4)
  - Central nervous system infection [Recovered/Resolved]
  - Brain abscess [Recovered/Resolved]
  - Product use issue [Not Recovered/Not Resolved]
  - T-lymphocyte count decreased [Recovering/Resolving]

NARRATIVE: CASE EVENT DATE: 20210610
